FAERS Safety Report 5327698-8 (Version None)
Quarter: 2007Q2

REPORT INFORMATION
  Report Type: 
  Country: None (occurrence: None)
  Receive Date: 20070517
  Receipt Date: 20070515
  Transmission Date: 20071010
  Serious: Yes (Other)
  Sender: FDA-Public Use
  Company Number: US-MERCK-0704USA00798

PATIENT
  Age: 55 Year
  Sex: Female

DRUGS (10)
  1. JANUVIA [Suspect]
     Indication: DIABETES MELLITUS NON-INSULIN-DEPENDENT
     Route: 048
     Dates: start: 20070102, end: 20070111
  2. METFORMIN [Concomitant]
     Indication: DIABETES MELLITUS NON-INSULIN-DEPENDENT
     Route: 048
  3. LIPITOR [Concomitant]
     Indication: LIPIDS INCREASED
     Route: 048
  4. MIDRIN [Concomitant]
     Route: 065
  5. NEURONTIN [Concomitant]
     Indication: NEUROPATHY
     Route: 048
  6. PROVIGIL [Concomitant]
     Indication: SLEEP APNOEA SYNDROME
     Route: 048
  7. VITAMINS (UNSPECIFIED) [Concomitant]
     Route: 065
  8. ASPIRIN [Concomitant]
     Route: 065
  9. WELLBUTRIN [Concomitant]
     Indication: DEPRESSION
     Route: 048
  10. ACETAMINOPHEN AND HYDROCODONE BITARTRATE [Concomitant]
     Route: 065

REACTIONS (1)
  - HYPOGLYCAEMIA [None]
